FAERS Safety Report 11077401 (Version 2)
Quarter: 2015Q2

REPORT INFORMATION
  Report Type: Spontaneous
  Country: US (occurrence: US)
  Receive Date: 20150430
  Receipt Date: 20150526
  Transmission Date: 20150821
  Serious: Yes (Other)
  Sender: FDA-Public Use
  Company Number: US-JNJFOC-20130618717

PATIENT
  Sex: Female

DRUGS (4)
  1. RAZADYNE [Suspect]
     Active Substance: GALANTAMINE HYDROBROMIDE
     Indication: SEIZURE
     Route: 048
     Dates: start: 1999
  2. TRAMADOL [Concomitant]
     Active Substance: TRAMADOL
     Indication: ARTHROPATHY
     Route: 048
  3. ESTROGEN [Concomitant]
     Active Substance: ESTRONE\SUS SCROFA OVARY
     Indication: OESTROGEN THERAPY
     Route: 048
     Dates: start: 1992
  4. SOMA [Concomitant]
     Active Substance: CARISOPRODOL
     Indication: ARTHROPATHY
     Route: 048

REACTIONS (5)
  - Hypophagia [Not Recovered/Not Resolved]
  - Adverse drug reaction [Not Recovered/Not Resolved]
  - Weight decreased [Not Recovered/Not Resolved]
  - Vision blurred [Not Recovered/Not Resolved]
  - Transient ischaemic attack [Not Recovered/Not Resolved]

NARRATIVE: CASE EVENT DATE: 1999
